FAERS Safety Report 4680839-8 (Version None)
Quarter: 2005Q2

REPORT INFORMATION
  Report Type: 
  Country: None (occurrence: None)
  Receive Date: 20050601
  Receipt Date: 20050601
  Transmission Date: 20051028
  Serious: Yes (Hospitalization)
  Sender: FDA-Public Use
  Company Number: None

PATIENT
  Age: 71 Year
  Sex: Male

DRUGS (13)
  1. FUDR [Suspect]
     Indication: GASTROOESOPHAGEAL CANCER
     Dosage: 110 MG/KG CIV
     Route: 042
     Dates: start: 20050214
  2. FUDR [Suspect]
     Indication: METASTASIS
     Dosage: 110 MG/KG CIV
     Route: 042
     Dates: start: 20050214
  3. LEUCOVORIN CALCIUM [Suspect]
     Dosage: 500 MG/ M2 CIV
     Route: 042
     Dates: start: 20050314
  4. LEUCOVORIN CALCIUM [Suspect]
     Dosage: 500 MG/ M2 CIV
     Route: 042
     Dates: start: 20050321
  5. OXALIPLATIN 25 MG/M2 [Suspect]
     Dosage: 25 MG/M2 OVER 25 MINS IV
     Route: 042
     Dates: start: 20050221
  6. TAXOTERE [Suspect]
     Dosage: 20 MG/M2 OVER 30 MG IV
     Route: 042
     Dates: start: 20050321
  7. NEUPOGEN [Concomitant]
  8. PROCRIT [Concomitant]
  9. ANTIEMETICS [Concomitant]
  10. ALOXI [Concomitant]
  11. EMEND [Concomitant]
  12. DEXAMETHASONE [Concomitant]
  13. BENADRYL [Concomitant]

REACTIONS (3)
  - ABSCESS [None]
  - DERMAL CYST [None]
  - PYREXIA [None]
